FAERS Safety Report 11160921 (Version 1)
Quarter: 2015Q2

REPORT INFORMATION
  Report Type: Spontaneous
  Country: US (occurrence: US)
  Receive Date: 20150604
  Receipt Date: 20150604
  Transmission Date: 20150821
  Serious: No
  Sender: FDA-Public Use
  Company Number: US-SA-2014SA071402

PATIENT
  Age: 31 Year
  Sex: Male

DRUGS (1)
  1. LANTUS [Suspect]
     Active Substance: INSULIN GLARGINE
     Indication: TYPE 1 DIABETES MELLITUS
     Route: 058

REACTIONS (4)
  - Underdose [Unknown]
  - Incoherent [Unknown]
  - Blood glucose decreased [Unknown]
  - Feeling drunk [Unknown]

NARRATIVE: CASE EVENT DATE: 20130601
